FAERS Safety Report 7339045-0 (Version None)
Quarter: 2011Q1

REPORT INFORMATION
  Report Type: 
  Country: None (occurrence: None)
  Receive Date: 20110308
  Receipt Date: 20110223
  Transmission Date: 20110831
  Serious: Yes (Hospitalization)
  Sender: FDA-Public Use
  Company Number: FR-ELI_LILLY_AND_COMPANY-FR201102007531

PATIENT
  Sex: Male

DRUGS (5)
  1. SKENAN [Concomitant]
     Indication: OSTEITIS
     Dosage: 40 MG, DAILY (1/D)
     Route: 048
     Dates: start: 20090501
  2. PLAVIX [Concomitant]
     Indication: ARTERIAL DISORDER
     Dosage: 75 MG, DAILY (1/D)
     Route: 048
     Dates: start: 20090501, end: 20091120
  3. CYMBALTA [Suspect]
     Dosage: 60 MG, DAILY (1/D)
     Route: 048
     Dates: start: 20090501, end: 20091101
  4. ACTISKENAN [Concomitant]
     Indication: OSTEITIS
     Route: 048
     Dates: start: 20090501
  5. TAHOR [Concomitant]
     Indication: DYSLIPIDAEMIA
     Dosage: 10 MG, DAILY (1/D)
     Route: 048
     Dates: start: 20090501

REACTIONS (3)
  - ECZEMA IMPETIGINOUS [None]
  - ECZEMA [None]
  - INFLAMMATION [None]
